FAERS Safety Report 5307573-5 (Version None)
Quarter: 2007Q2

REPORT INFORMATION
  Report Type: 
  Country: None (occurrence: None)
  Receive Date: 20070425
  Receipt Date: 20070416
  Transmission Date: 20071010
  Serious: Yes (Other)
  Sender: FDA-Public Use
  Company Number: US-PFIZER INC-2007031475

PATIENT
  Sex: Female
  Weight: 56.818 kg

DRUGS (4)
  1. LYRICA [Suspect]
     Indication: PAIN
     Dates: start: 20070302
  2. LIPITOR [Concomitant]
  3. TYLENOL [Concomitant]
  4. ULTRAM [Concomitant]

REACTIONS (1)
  - PAIN [None]
